FAERS Safety Report 9401984 (Version 1)
Quarter: 2013Q3

REPORT INFORMATION
  Report Type: Spontaneous
  Country: US (occurrence: US)
  Receive Date: 20130716
  Receipt Date: 20130716
  Transmission Date: 20140515
  Serious: No
  Sender: FDA-Public Use
  Company Number: US-PFIZER INC-2013205418

PATIENT
  Sex: Female

DRUGS (1)
  1. PANTOPRAZOLE [Suspect]
     Dosage: UNK

REACTIONS (5)
  - Drug intolerance [Unknown]
  - Feeling abnormal [Unknown]
  - Fall [Unknown]
  - Abdominal pain upper [Unknown]
  - Reaction to drug excipients [Unknown]
